FAERS Safety Report 6414254-3 (Version None)
Quarter: 2009Q4

REPORT INFORMATION
  Report Type: 
  Country: None (occurrence: None)
  Receive Date: 20091026
  Receipt Date: 20091019
  Transmission Date: 20100525
  Serious: Yes (Other)
  Sender: FDA-Public Use
  Company Number: BR-BRISTOL-MYERS SQUIBB COMPANY-14797153

PATIENT
  Sex: Male

DRUGS (12)
  1. BECENUN [Suspect]
     Indication: STEM CELL TRANSPLANT
     Route: 042
     Dates: start: 20090108, end: 20090108
  2. ACYCLOVIR [Concomitant]
  3. DRAMIN [Concomitant]
  4. FLUCONAZOLE [Concomitant]
  5. OMEPRAZOLE [Concomitant]
  6. ALBENDAZOLE [Concomitant]
  7. ONDANSETRON [Concomitant]
  8. ACETAMINOPHEN [Concomitant]
  9. PLASIL [Concomitant]
  10. BACTRIM [Concomitant]
  11. FLEBOCORTID [Concomitant]
  12. BENADRYL [Concomitant]

REACTIONS (1)
  - CONVULSION [None]
